FAERS Safety Report 6759580-3 (Version None)
Quarter: 2010Q2

REPORT INFORMATION
  Report Type: 
  Country: None (occurrence: None)
  Receive Date: 20100608
  Receipt Date: 20100524
  Transmission Date: 20101027
  Serious: Yes (Other)
  Sender: FDA-Public Use
  Company Number: GB-MYLANLABS-2010S1009208

PATIENT
  Sex: Female

DRUGS (1)
  1. DOXYCYCLINE MONOHYDRATE [Suspect]
     Indication: DRUG USE FOR UNKNOWN INDICATION

REACTIONS (6)
  - DECREASED APPETITE [None]
  - FOOD AVERSION [None]
  - NAIL PIGMENTATION [None]
  - NAUSEA [None]
  - PHOTOSENSITIVITY REACTION [None]
  - VOMITING [None]
